FAERS Safety Report 25312900 (Version 1)
Quarter: 2025Q2

REPORT INFORMATION
  Report Type: Spontaneous
  Country: GB (occurrence: GB)
  Receive Date: 20250514
  Receipt Date: 20250514
  Transmission Date: 20250717
  Serious: Yes (Other)
  Sender: ASTELLAS
  Company Number: None

PATIENT
  Age: 45 Year
  Sex: Male
  Weight: 64 kg

DRUGS (1)
  1. MIRABEGRON [Suspect]
     Active Substance: MIRABEGRON
     Indication: Hypertonic bladder
     Dosage: 50MG IN THE MORNING
     Route: 065
     Dates: start: 20250301, end: 20250513

REACTIONS (2)
  - Alopecia [Unknown]
  - Alopecia [Unknown]
